FAERS Safety Report 9886628 (Version 1)
Quarter: 2014Q1

REPORT INFORMATION
  Report Type: Spontaneous
  Country: US (occurrence: US)
  Receive Date: 20140210
  Receipt Date: 20140210
  Transmission Date: 20141002
  Serious: Yes (Other)
  Sender: FDA-Public Use
  Company Number: US-ABBVIE-14P-163-1199151-00

PATIENT
  Sex: Female

DRUGS (1)
  1. HUMIRA [Suspect]
     Indication: PRODUCT USED FOR UNKNOWN INDICATION
     Dosage: 50MG WEEKLY UNTIL 1 MONTH POSITIVE PREGNANCY TEST
     Dates: end: 201302

REACTIONS (2)
  - Abortion spontaneous [Unknown]
  - Rheumatoid arthritis [Unknown]
